FAERS Safety Report 7462102-5 (Version None)
Quarter: 2011Q2

REPORT INFORMATION
  Report Type: 
  Country: None (occurrence: None)
  Receive Date: 20110506
  Receipt Date: 20110420
  Transmission Date: 20111010
  Serious: Yes (Hospitalization, Other)
  Sender: FDA-Public Use
  Company Number: US-BAYER-200941039NA

PATIENT
  Age: 38 Year
  Sex: Female
  Weight: 64 kg

DRUGS (16)
  1. ZOFRAN [Concomitant]
     Dates: start: 20060501
  2. YAZ [Suspect]
     Dosage: 1 DF (DAILY DOSE), QD, ORAL
     Route: 048
     Dates: start: 20040601, end: 20071203
  3. WARFARIN [Concomitant]
     Dates: start: 20071219, end: 20080306
  4. UNKNOWN DRUG [Concomitant]
  5. CHANTIX [Concomitant]
     Indication: SMOKING CESSATION THERAPY
     Dosage: UNK
     Route: 048
     Dates: start: 20071130
  6. XANAX [Concomitant]
  7. OXYCET [Concomitant]
  8. INTRAVAGINAL CONTRACEPTIVES [Concomitant]
     Dates: start: 20080128
  9. UNKNOWN DRUG [Concomitant]
     Indication: SINUS DISORDER
  10. INTRAVAGINAL CONTRACEPTIVES [Concomitant]
     Dates: start: 20080128
  11. ANALGESICS [Concomitant]
  12. LEVAQUIN [Concomitant]
     Indication: PNEUMONIA
  13. PERCOCET [Concomitant]
     Indication: PAIN
  14. LOPRESSOR [Concomitant]
     Dates: start: 20040407
  15. ANALGESICS [Concomitant]
     Indication: NAUSEA
  16. CELEXA [Concomitant]
     Dates: start: 20040601

REACTIONS (8)
  - PULMONARY EMBOLISM [None]
  - ANXIETY [None]
  - DYSPNOEA [None]
  - PULMONARY INFARCTION [None]
  - VENA CAVA THROMBOSIS [None]
  - MUSCULOSKELETAL CHEST PAIN [None]
  - PAIN [None]
  - PLEURAL EFFUSION [None]
